FAERS Safety Report 8333086-2 (Version None)
Quarter: 2012Q2

REPORT INFORMATION
  Report Type: 
  Country: None (occurrence: None)
  Receive Date: 20120503
  Receipt Date: 20120430
  Transmission Date: 20120825
  Serious: Yes (Other)
  Sender: FDA-Public Use
  Company Number: PHHO2011DE019111

PATIENT
  Sex: Male
  Weight: 72 kg

DRUGS (8)
  1. VOLTAREN [Concomitant]
     Indication: BACK PAIN
     Dosage: UNK
  2. AFINITOR [Suspect]
     Dosage: 5 MG, QD
     Dates: start: 20111208
  3. AFINITOR [Suspect]
     Indication: NEUROENDOCRINE TUMOUR
     Dosage: 10 MG, UNK
     Dates: start: 20110901, end: 20111113
  4. SANDOSTATIN LAR [Concomitant]
     Indication: NEUROENDOCRINE TUMOUR
     Dosage: 30 MG, UNK
     Dates: start: 20070301
  5. OMEPRAZOLE [Concomitant]
     Indication: ABDOMINAL PAIN UPPER
     Dosage: 10 MG, UNK
     Route: 048
     Dates: start: 20110929
  6. AFINITOR [Suspect]
     Dosage: NO TREATMENT
     Dates: start: 20111114, end: 20111207
  7. LEVOTHYROXINE SODIUM [Concomitant]
     Indication: HYPOTHYROIDISM
     Dosage: 100 MG, UNK
     Route: 048
     Dates: start: 20111104
  8. CELEBREX [Concomitant]
     Indication: BACK PAIN
     Dosage: 200 MG, UNK
     Route: 048
     Dates: start: 20111027

REACTIONS (3)
  - CIRCULATORY COLLAPSE [None]
  - NORMOCHROMIC NORMOCYTIC ANAEMIA [None]
  - BLOOD GLUCOSE INCREASED [None]
